FAERS Safety Report 9952479 (Version 1)
Quarter: 2014Q1

REPORT INFORMATION
  Report Type: Spontaneous
  Country: US (occurrence: US)
  Receive Date: 20140304
  Receipt Date: 20140304
  Transmission Date: 20141002
  Serious: No
  Sender: FDA-Public Use
  Company Number: US-AMGEN-USASP2013069589

PATIENT
  Age: 35 Year
  Sex: Female
  Weight: 72.56 kg

DRUGS (4)
  1. ENBREL [Suspect]
     Indication: PRODUCT USED FOR UNKNOWN INDICATION
     Dosage: 50 MG, QWK
     Route: 058
  2. VITAMIN B12                        /00056201/ [Concomitant]
     Dosage: 1000 CR
  3. MULTIVITAMINS, PLAIN [Concomitant]
     Dosage: UNK
  4. SINGULAIR [Concomitant]
     Dosage: 10 MG, UNK

REACTIONS (2)
  - Injection site rash [Unknown]
  - Injection site pruritus [Unknown]
